FAERS Safety Report 8317277-2 (Version None)
Quarter: 2012Q2

REPORT INFORMATION
  Report Type: 
  Country: None (occurrence: None)
  Receive Date: 20120427
  Receipt Date: 20120419
  Transmission Date: 20120825
  Serious: Yes (Other)
  Sender: FDA-Public Use
  Company Number: US-ABBOTT-12P-163-0927405-00

PATIENT
  Sex: Male
  Weight: 77.18 kg

DRUGS (2)
  1. LOPRESSOR [Concomitant]
     Indication: HYPERTENSION
  2. HUMIRA [Suspect]
     Indication: CROHN'S DISEASE
     Dates: start: 20111001, end: 20120101

REACTIONS (3)
  - VOMITING [None]
  - ABDOMINAL ADHESIONS [None]
  - WEIGHT DECREASED [None]
